FAERS Safety Report 8406052-6 (Version None)
Quarter: 2012Q2

REPORT INFORMATION
  Report Type: 
  Country: None (occurrence: None)
  Receive Date: 20120604
  Receipt Date: 20120529
  Transmission Date: 20120825
  Serious: Yes (Hospitalization)
  Sender: FDA-Public Use
  Company Number: US-BAYER-2011-081822

PATIENT
  Age: 33 Year
  Sex: Female
  Weight: 90.703 kg

DRUGS (3)
  1. MOTRIN [Concomitant]
     Indication: HEADACHE
  2. YAZ [Suspect]
     Indication: CONTRACEPTION
     Dosage: UNK
     Dates: start: 20090101, end: 20101201
  3. IMITREX [Concomitant]
     Indication: HEADACHE

REACTIONS (5)
  - JUGULAR VEIN THROMBOSIS [None]
  - INTRACRANIAL VENOUS SINUS THROMBOSIS [None]
  - ASTHENIA [None]
  - PAIN [None]
  - HEADACHE [None]
